FAERS Safety Report 24850209 (Version 3)
Quarter: 2025Q3

REPORT INFORMATION
  Report Type: Spontaneous
  Country: US (occurrence: US)
  Receive Date: 20250116
  Receipt Date: 20250810
  Transmission Date: 20251020
  Serious: No
  Sender: ALEXION PHARMACEUTICALS
  Company Number: US-AstraZeneca-CH-00779025AP

PATIENT
  Sex: Male

DRUGS (1)
  1. BREZTRI [Suspect]
     Active Substance: BUDESONIDE\FORMOTEROL\GLYCOPYRROLATE

REACTIONS (7)
  - Device issue [Unknown]
  - Product administration error [Unknown]
  - Overdose [Unknown]
  - Incorrect dose administered [Unknown]
  - Unevaluable event [Unknown]
  - Device malfunction [Unknown]
  - Device delivery system issue [Unknown]
